FAERS Safety Report 17557322 (Version 3)
Quarter: 2020Q4

REPORT INFORMATION
  Report Type: Report from Study
  Country: JP (occurrence: JP)
  Receive Date: 20200318
  Receipt Date: 20201013
  Transmission Date: 20210113
  Serious: Yes (Death, Hospitalization, Other)
  Sender: FDA-Public Use
  Company Number: JP-ASTRAZENECA-2020SE37162

PATIENT
  Age: 74 Year
  Sex: Female
  Weight: 58 kg

DRUGS (8)
  1. TAGRISSO [Suspect]
     Active Substance: OSIMERTINIB
     Indication: NON-SMALL CELL LUNG CANCER
     Route: 048
     Dates: start: 20200306, end: 20200807
  2. PANVITAN (RETINOL AND CALCIFEROL COMBINED) [Concomitant]
     Dosage: 1 G
     Route: 048
     Dates: start: 20200125
  3. TENELIA [Concomitant]
     Active Substance: TENELIGLIPTIN
     Dosage: 20 MG
     Route: 048
     Dates: start: 20200331, end: 20201007
  4. PEMETREXED. [Suspect]
     Active Substance: PEMETREXED
     Indication: NON-SMALL CELL LUNG CANCER
     Dosage: 790 MG
     Route: 042
     Dates: start: 20200218, end: 20200218
  5. TAGRISSO [Suspect]
     Active Substance: OSIMERTINIB
     Indication: NON-SMALL CELL LUNG CANCER
     Route: 048
     Dates: start: 20200218, end: 20200223
  6. CISPLATIN. [Suspect]
     Active Substance: CISPLATIN
     Indication: NON-SMALL CELL LUNG CANCER
     Dosage: 120 MG
     Route: 042
     Dates: start: 20200218, end: 20200218
  7. MINOMYCIN [Concomitant]
     Active Substance: MINOCYCLINE HYDROCHLORIDE
     Indication: SKIN DISORDER
     Dosage: 100 MG
     Route: 048
     Dates: start: 20200218, end: 20201007
  8. PRIMPERAN [Concomitant]
     Active Substance: METOCLOPRAMIDE HYDROCHLORIDE
     Indication: NAUSEA
     Dosage: 10.0MG AS REQUIRED
     Route: 065
     Dates: start: 20200219, end: 20200224

REACTIONS (3)
  - Hypotension [Unknown]
  - Lung neoplasm malignant [Fatal]
  - Gastric ulcer [Recovering/Resolving]

NARRATIVE: CASE EVENT DATE: 20200227
